FAERS Safety Report 23408886 (Version 1)
Quarter: 2024Q1

REPORT INFORMATION
  Report Type: Spontaneous
  Country: US (occurrence: US)
  Receive Date: 20240117
  Receipt Date: 20240117
  Transmission Date: 20240410
  Serious: Yes (Other)
  Sender: FDA-Public Use
  Company Number: US-SPECGX-T202400434

PATIENT
  Age: 53 Year
  Sex: Female
  Weight: 131 kg

DRUGS (5)
  1. FENTANYL TRANSDERMAL SYSTEM [Suspect]
     Active Substance: FENTANYL
     Indication: Back pain
     Dosage: 75 MILLIGRAM
     Route: 062
  2. OXYCODONE [Suspect]
     Active Substance: OXYCODONE
     Indication: Back pain
     Dosage: 30 MILLIGRAM
     Route: 065
  3. HYDROMORPHONE [Suspect]
     Active Substance: HYDROMORPHONE
     Indication: Back pain
     Dosage: 8 MILLIGRAM, Q6H
     Route: 065
  4. HYDROMORPHONE [Suspect]
     Active Substance: HYDROMORPHONE
     Indication: Back pain
     Dosage: 4 MILLIGRAM, Q6H (LOWERED THE STRENGTH TO 4 MG)
     Route: 065
     Dates: end: 202312
  5. HYDROMORPHONE [Suspect]
     Active Substance: HYDROMORPHONE
     Indication: Back pain
     Dosage: 4 MILLIGRAM, Q6H (TAKING HYDROMORPHONE 2 MG, 2 EVERY AFTER 6 HOURS)
     Route: 065
     Dates: start: 202312

REACTIONS (9)
  - Thrombosis [Unknown]
  - Foot fracture [Not Recovered/Not Resolved]
  - Surgery [Unknown]
  - Osteoporosis [Unknown]
  - Illness [Unknown]
  - Arthritis [Unknown]
  - Feeling abnormal [Unknown]
  - Hypoaesthesia [Unknown]
  - Product availability issue [Unknown]

NARRATIVE: CASE EVENT DATE: 20231201
